FAERS Safety Report 6884217-2 (Version None)
Quarter: 2010Q3

REPORT INFORMATION
  Report Type: 
  Country: None (occurrence: None)
  Receive Date: 20100729
  Receipt Date: 20070606
  Transmission Date: 20110219
  Serious: No
  Sender: FDA-Public Use
  Company Number: US-PFIZER INC-2007046945

PATIENT
  Sex: Male
  Weight: 90.72 kg

DRUGS (4)
  1. CELEBREX [Suspect]
     Indication: PAIN
     Dates: start: 20070101
  2. ELMIRON [Concomitant]
  3. TAMSULOSIN HYDROCHLORIDE [Concomitant]
  4. LYRICA [Concomitant]

REACTIONS (1)
  - BLISTER [None]
